FAERS Safety Report 15484005 (Version 1)
Quarter: 2018Q4

REPORT INFORMATION
  Report Type: Spontaneous
  Country: JP (occurrence: JP)
  Receive Date: 20181010
  Receipt Date: 20181010
  Transmission Date: 20190205
  Serious: Yes (Death, Other)
  Sender: FDA-Public Use
  Company Number: JP-BAYER-2018-184492

PATIENT

DRUGS (2)
  1. NEXAVAR [Suspect]
     Active Substance: SORAFENIB
     Indication: HEPATOCELLULAR CARCINOMA
     Route: 048
  2. STIVARGA [Suspect]
     Active Substance: REGORAFENIB
     Indication: HEPATOCELLULAR CARCINOMA
     Route: 048

REACTIONS (8)
  - Blood pressure increased [None]
  - Hepatocellular carcinoma [None]
  - Metastases to peritoneum [None]
  - General physical health deterioration [None]
  - Death [Fatal]
  - Palmar-plantar erythrodysaesthesia syndrome [None]
  - Malaise [None]
  - Decreased appetite [None]
